FAERS Safety Report 4395843-7 (Version None)
Quarter: 2004Q3

REPORT INFORMATION
  Report Type: 
  Country: None (occurrence: None)
  Receive Date: 20040712
  Receipt Date: 20040628
  Transmission Date: 20050211
  Serious: No
  Sender: FDA-Public Use
  Company Number: 2004GB01588

PATIENT
  Age: 56 Year
  Weight: 78.1 kg

DRUGS (5)
  1. CRESTOR [Suspect]
     Indication: HYPERCHOLESTEROLAEMIA
     Dosage: 20 MG PO
     Route: 048
     Dates: start: 20040414, end: 20040609
  2. ASPIRIN [Concomitant]
  3. ATENOLOL [Concomitant]
  4. LOSARTAN POTASSIUM [Concomitant]
  5. BENDROFLUAZIDE [Concomitant]

REACTIONS (2)
  - MYALGIA [None]
  - PYREXIA [None]
